FAERS Safety Report 21236896 (Version 2)
Quarter: 2025Q3

REPORT INFORMATION
  Report Type: Spontaneous
  Country: JP (occurrence: JP)
  Receive Date: 20220822
  Receipt Date: 20250828
  Transmission Date: 20251021
  Serious: Yes (Death, Other)
  Sender: NOVO NORDISK
  Company Number: JP-NOVOPROD-949626

PATIENT
  Age: 74 Year
  Sex: Male

DRUGS (5)
  1. RYBELSUS [Suspect]
     Active Substance: SEMAGLUTIDE
     Indication: Type 2 diabetes mellitus
     Dosage: 3 MG, QD
     Route: 048
     Dates: start: 20220625, end: 20220720
  2. MIGLITOL [Concomitant]
     Active Substance: MIGLITOL
     Indication: Product used for unknown indication
     Route: 048
  3. CANAGLIFLOZIN [Concomitant]
     Active Substance: CANAGLIFLOZIN
     Indication: Product used for unknown indication
     Route: 048
  4. CRESTOR [Concomitant]
     Active Substance: ROSUVASTATIN CALCIUM
     Indication: Product used for unknown indication
     Route: 048
  5. AMARYL [Concomitant]
     Active Substance: GLIMEPIRIDE
     Indication: Product used for unknown indication
     Route: 048

REACTIONS (1)
  - Fall [Fatal]

NARRATIVE: CASE EVENT DATE: 20220720
